FAERS Safety Report 5606808-9 (Version None)
Quarter: 2008Q2

REPORT INFORMATION
  Report Type: 
  Country: None (occurrence: None)
  Receive Date: 20080129
  Receipt Date: 20080121
  Transmission Date: 20081010
  Serious: Yes (Other)
  Sender: FDA-Public Use
  Company Number: GB-ASTRAZENECA-2007AP08182

PATIENT
  Age: 16698 Day
  Sex: Female

DRUGS (3)
  1. AZD2281 [Suspect]
     Indication: BREAST CANCER
     Route: 048
     Dates: start: 20071213, end: 20071228
  2. TRAMADOL HCL [Concomitant]
     Indication: PAIN
     Route: 048
     Dates: start: 20070801
  3. PARACETAMOL [Concomitant]
     Indication: PAIN
     Route: 048
     Dates: start: 20070801

REACTIONS (1)
  - BLOOD AMYLASE INCREASED [None]
